FAERS Safety Report 26208266 (Version 1)
Quarter: 2025Q4

REPORT INFORMATION
  Report Type: Report from Study
  Country: KR (occurrence: KR)
  Receive Date: 20251229
  Receipt Date: 20251229
  Transmission Date: 20260119
  Serious: Yes (Congenital Anomaly)
  Sender: JOHNSON AND JOHNSON
  Company Number: KR-JNJFOC-20251235365

PATIENT

DRUGS (2)
  1. TOPAMAX [Suspect]
     Active Substance: TOPIRAMATE
     Indication: Epilepsy
     Route: 064
  2. TOPAMAX [Suspect]
     Active Substance: TOPIRAMATE
     Dosage: LESS THAN 50 MILLIGRAMS
     Route: 064

REACTIONS (10)
  - Fallot^s tetralogy [Unknown]
  - Talipes [Unknown]
  - Spina bifida [Unknown]
  - Microcephaly [Unknown]
  - Ventricular septal defect [Unknown]
  - Atrial septal defect [Unknown]
  - Cleft palate [Unknown]
  - Cleft lip [Unknown]
  - Congenital anomaly [Unknown]
  - Foetal exposure during pregnancy [Unknown]
